FAERS Safety Report 6028641-9 (Version None)
Quarter: 2009Q1

REPORT INFORMATION
  Report Type: 
  Country: None (occurrence: None)
  Receive Date: 20090105
  Receipt Date: 20090105
  Transmission Date: 20090719
  Serious: Yes (Other)
  Sender: FDA-Public Use
  Company Number: None

PATIENT
  Age: 79 Year
  Sex: Male
  Weight: 112 kg

DRUGS (2)
  1. LORAZEPAM [Suspect]
     Indication: SEDATIVE THERAPY
     Dosage: 2 MG ONCE PO
     Route: 048
     Dates: start: 20081202, end: 20081202
  2. LORAZEPAM [Suspect]
     Indication: SEDATIVE THERAPY
     Dosage: 2 MG ONCE IV
     Route: 042
     Dates: start: 20081202, end: 20081202

REACTIONS (3)
  - AGGRESSION [None]
  - AGITATION [None]
  - CONFUSIONAL STATE [None]
